FAERS Safety Report 21674464 (Version 1)
Quarter: 2022Q4

REPORT INFORMATION
  Report Type: Spontaneous
  Country: US (occurrence: US)
  Receive Date: 20221202
  Receipt Date: 20221202
  Transmission Date: 20230113
  Serious: No
  Sender: FDA-Public Use
  Company Number: US-009507513-2211USA009675

PATIENT
  Age: 91 Year
  Sex: Male

DRUGS (3)
  1. VERQUVO [Suspect]
     Active Substance: VERICIGUAT
     Dosage: 2.5 MILLIGRAM
  2. VERQUVO [Suspect]
     Active Substance: VERICIGUAT
     Dosage: 5 MILLIGRAM
  3. VERQUVO [Suspect]
     Active Substance: VERICIGUAT
     Dosage: 10 MILLIGRAM

REACTIONS (1)
  - Rash [Unknown]
